FAERS Safety Report 9919524 (Version 2)
Quarter: 2014Q1

REPORT INFORMATION
  Report Type: Spontaneous
  Country: FI (occurrence: FI)
  Receive Date: 20140224
  Receipt Date: 20140306
  Transmission Date: 20141002
  Serious: Yes (Hospitalization)
  Sender: FDA-Public Use
  Company Number: FI-AMGEN-FINSP2014012077

PATIENT
  Age: 85 Year
  Sex: Female

DRUGS (12)
  1. MIMPARA [Suspect]
     Indication: HYPERPARATHYROIDISM
     Dosage: 60 MG, TID
     Route: 065
  2. KLEXANE [Concomitant]
     Dosage: 40 MG, QD
  3. KALISOL [Concomitant]
     Dosage: 20 ML, BID
  4. ORISANTIN                          /00042901/ [Concomitant]
     Dosage: 200/25, BID
  5. OMEPRAZOL                          /00661201/ [Concomitant]
     Dosage: 20 MG, QD
  6. BISOPROLOL [Concomitant]
     Dosage: 5 MG, 1 1/2 TABLETS QD
  7. LOSARTAN [Concomitant]
     Dosage: 50 MG, UNK
  8. SIMVASTATIN [Concomitant]
     Dosage: 1 TAB, QD
  9. CIRCADIN [Concomitant]
     Dosage: 2 MG, QD
  10. ORMOX [Concomitant]
     Dosage: 20 MG, BID
  11. OPAMOX [Concomitant]
     Dosage: 15 MG, QD
  12. KEFALEX [Concomitant]
     Dosage: 500 MG, TID

REACTIONS (3)
  - Urinary tract infection [Recovering/Resolving]
  - Cerebral infarction [Recovering/Resolving]
  - Myocardial infarction [Recovering/Resolving]
